FAERS Safety Report 17686008 (Version 2)
Quarter: 2020Q2

REPORT INFORMATION
  Report Type: Spontaneous
  Country: GB (occurrence: GB)
  Receive Date: 20200420
  Receipt Date: 20200429
  Transmission Date: 20200714
  Serious: Yes (Other)
  Sender: FDA-Public Use
  Company Number: GB-NOVOPROD-723536

PATIENT
  Age: 49 Year
  Sex: Female
  Weight: 49 kg

DRUGS (2)
  1. VAGIFEM [Suspect]
     Active Substance: ESTRADIOL
     Indication: ATROPHIC VULVOVAGINITIS
     Dosage: 10 ?G
     Route: 067
     Dates: start: 20200318, end: 20200320
  2. LEVOTHYROXINE. [Concomitant]
     Active Substance: LEVOTHYROXINE
     Dosage: UNK
     Route: 065
     Dates: start: 2004

REACTIONS (5)
  - Vulvovaginal burning sensation [Recovered/Resolved with Sequelae]
  - Urethritis noninfective [Recovered/Resolved with Sequelae]
  - Vulvovaginal erythema [Recovered/Resolved with Sequelae]
  - Vulvovaginal discomfort [Recovered/Resolved with Sequelae]
  - Vulvovaginal pain [Recovered/Resolved with Sequelae]

NARRATIVE: CASE EVENT DATE: 20200318
